FAERS Safety Report 8592369-1 (Version None)
Quarter: 2012Q3

REPORT INFORMATION
  Report Type: 
  Country: None (occurrence: None)
  Receive Date: 20120814
  Receipt Date: 20120806
  Transmission Date: 20120928
  Serious: Yes (Other)
  Sender: FDA-Public Use
  Company Number: US-AMGEN-USASP2012043435

PATIENT
  Age: 58 Year
  Sex: Female

DRUGS (6)
  1. PROLIA [Suspect]
     Dosage: 60 MG, Q6MO
     Dates: start: 20110607
  2. MAXALT [Concomitant]
     Indication: MIGRAINE
     Dosage: UNK UNK, PRN
  3. PROLIA [Suspect]
     Dosage: 60 MG, Q6MO
     Dates: start: 20111229
  4. PROLIA [Suspect]
     Dosage: 60 MG, Q6MO
     Dates: start: 20120702
  5. FISH OIL [Concomitant]
     Dosage: UNK
  6. PROLIA [Suspect]
     Indication: OSTEOPOROSIS POSTMENOPAUSAL
     Dosage: 60 MG, Q6MO
     Dates: start: 20101206

REACTIONS (13)
  - LIP SWELLING [None]
  - URTICARIA [None]
  - DYSPNOEA [None]
  - LACRIMATION INCREASED [None]
  - BURNING SENSATION [None]
  - MALAISE [None]
  - INFLUENZA LIKE ILLNESS [None]
  - THROAT TIGHTNESS [None]
  - EYE PRURITUS [None]
  - BLOOD PRESSURE DECREASED [None]
  - DIZZINESS [None]
  - ANAPHYLACTIC SHOCK [None]
  - MOBILITY DECREASED [None]
